FAERS Safety Report 11824560 (Version 1)
Quarter: 2015Q4

REPORT INFORMATION
  Report Type: Report from Study
  Country: AU (occurrence: AU)
  Receive Date: 20151210
  Receipt Date: 20151210
  Transmission Date: 20160305
  Serious: Yes (Hospitalization)
  Sender: FDA-Public Use
  Company Number: AU-ABBVIE-15P-008-1514842-00

PATIENT
  Age: 54 Year
  Sex: Male

DRUGS (1)
  1. VIEKIRA PAK-RBV 600 [Suspect]
     Active Substance: DASABUVIR\OMBITASVIR\PARITAPREVIR\RIBAVIRIN\RITONAVIR
     Indication: HEPATITIS C
     Route: 048
     Dates: start: 20151111

REACTIONS (3)
  - Wrist fracture [Not Recovered/Not Resolved]
  - Pain [Not Recovered/Not Resolved]
  - Accident [Not Recovered/Not Resolved]

NARRATIVE: CASE EVENT DATE: 20151203
